FAERS Safety Report 7730443-X (Version None)
Quarter: 2011Q3

REPORT INFORMATION
  Report Type: 
  Country: None (occurrence: None)
  Receive Date: 20110822
  Receipt Date: 20110812
  Transmission Date: 20111222
  Serious: Yes (Hospitalization)
  Sender: FDA-Public Use
  Company Number: US-145183

PATIENT
  Sex: Female
  Weight: 99.7913 kg

DRUGS (16)
  1. PREVACID [Concomitant]
  2. TRAMADOL HYDROCHLORIDE [Concomitant]
  3. FOLIC ACID [Concomitant]
  4. VITAMIN B [Concomitant]
  5. TOPROL-XL [Concomitant]
  6. NEURONTIN [Concomitant]
  7. VITAMIN D [Concomitant]
  8. ASCORBIC ACID [Concomitant]
  9. ACTONEL [Concomitant]
  10. PROCRIT [Concomitant]
  11. CALCIUM CARBONATE [Concomitant]
  12. DETROL [Concomitant]
  13. SIMVASTATIN [Concomitant]
  14. TAMOXIFEN CITRATE [Concomitant]
  15. WINRHO SDF LIQUID [Suspect]
     Indication: IDIOPATHIC THROMBOCYTOPENIC PURPURA
     Dosage: (40.4 UG/KG TOTAL INTRAVENOUS (NOT OTHERWISE SPECIFIED) )
     Route: 042
     Dates: start: 20110422, end: 20110422
  16. PREDNISONE [Concomitant]

REACTIONS (9)
  - HAEMOLYTIC ANAEMIA [None]
  - BLOOD LACTATE DEHYDROGENASE INCREASED [None]
  - WHITE BLOOD CELL COUNT DECREASED [None]
  - NAUSEA [None]
  - ECCHYMOSIS [None]
  - FATIGUE [None]
  - HAEMOGLOBIN DECREASED [None]
  - DECREASED ACTIVITY [None]
  - COOMBS TEST POSITIVE [None]
